FAERS Safety Report 20013320 (Version 1)
Quarter: 2021Q4

REPORT INFORMATION
  Report Type: Spontaneous
  Country: FR (occurrence: FR)
  Receive Date: 20211029
  Receipt Date: 20211029
  Transmission Date: 20220304
  Serious: Yes (Life-Threatening, Hospitalization)
  Sender: FDA-Public Use
  Company Number: None

PATIENT
  Age: 49 Year
  Sex: Male
  Weight: 55 kg

DRUGS (4)
  1. ZOLPIDEM [Suspect]
     Active Substance: ZOLPIDEM TARTRATE
     Dosage: UNKNOWN ,THERAPY START DATE :NOT ASKED
     Route: 065
     Dates: end: 20210927
  2. OXAZEPAM [Suspect]
     Active Substance: OXAZEPAM
     Dosage: UNKNOWN ,THERAPY START DATE :NOT ASKED
     Route: 065
     Dates: end: 20210927
  3. ALCOHOL [Suspect]
     Active Substance: ALCOHOL
     Dosage: UNKNOWN ,THERAPY START DATE :NOT ASKED
     Route: 065
     Dates: end: 20210927
  4. COCAINE [Suspect]
     Active Substance: COCAINE
     Dosage: UNKNOWN,THERAPY START DATE :NOT ASKED
     Route: 065
     Dates: end: 20210927

REACTIONS (5)
  - Drug abuse [Not Recovered/Not Resolved]
  - Coma [Recovered/Resolved]
  - Respiratory depression [Recovered/Resolved]
  - Acidosis [Recovered/Resolved]
  - Hypotension [Recovered/Resolved]

NARRATIVE: CASE EVENT DATE: 20210927
